FAERS Safety Report 7718072-5 (Version None)
Quarter: 2011Q3

REPORT INFORMATION
  Report Type: 
  Country: None (occurrence: None)
  Receive Date: 20110830
  Receipt Date: 20110823
  Transmission Date: 20111222
  Serious: Yes (Hospitalization, Other)
  Sender: FDA-Public Use
  Company Number: GB-JNJFOC-20061202897

PATIENT
  Sex: Female

DRUGS (8)
  1. ACETAMINOPHEN AND CODEINE PHOSPHATE [Concomitant]
  2. INFLIXIMAB [Suspect]
     Indication: RHEUMATOID ARTHRITIS
     Route: 042
     Dates: start: 20030814, end: 20030925
  3. METHOTREXATE [Concomitant]
  4. PREDNISOLONE [Concomitant]
  5. ESOMEPRAZOLE SODIUM [Concomitant]
  6. VISCOTEARS [Concomitant]
  7. AMITRIPTYLINE HCL [Concomitant]
  8. AZULFIDINE [Concomitant]

REACTIONS (1)
  - LYMPH NODE TUBERCULOSIS [None]
